FAERS Safety Report 9659310 (Version 1)
Quarter: 2013Q4

REPORT INFORMATION
  Report Type: Spontaneous
  Country: US (occurrence: US)
  Receive Date: 20131031
  Receipt Date: 20131031
  Transmission Date: 20140711
  Serious: No
  Sender: FDA-Public Use
  Company Number: US-HORIZON-DUE-0053-2013

PATIENT
  Sex: Female

DRUGS (2)
  1. IBUPROFEN [Suspect]
     Indication: PAIN
     Route: 048
  2. VOLTAREN [Suspect]
     Indication: PAIN

REACTIONS (1)
  - Inappropriate schedule of drug administration [Unknown]
